FAERS Safety Report 5779035-2 (Version None)
Quarter: 2008Q2

REPORT INFORMATION
  Report Type: 
  Country: None (occurrence: None)
  Receive Date: 20080617
  Receipt Date: 20080611
  Transmission Date: 20081010
  Serious: Yes (Hospitalization)
  Sender: FDA-Public Use
  Company Number: CERZ-1000253

PATIENT
  Age: 78 Year
  Sex: Male
  Weight: 105 kg

DRUGS (1)
  1. CEREZYME [Suspect]
     Indication: GAUCHER'S DISEASE
     Dosage: 6600 U, Q2W, INTRAVENOUS
     Route: 042
     Dates: start: 20031113

REACTIONS (3)
  - DIALYSIS [None]
  - MULTIPLE MYELOMA [None]
  - RENAL FAILURE [None]
